FAERS Safety Report 11221689 (Version 1)
Quarter: 2015Q2

REPORT INFORMATION
  Report Type: Spontaneous
  Country: CH (occurrence: CH)
  Receive Date: 20150626
  Receipt Date: 20150626
  Transmission Date: 20150821
  Serious: Yes (Other)
  Sender: FDA-Public Use
  Company Number: CH-ROXANE LABORATORIES, INC.-2015-RO-01037RO

PATIENT
  Age: 66 Year
  Sex: Male

DRUGS (9)
  1. HYDROXIN [Concomitant]
     Dosage: 25 MG
     Route: 065
  2. PARACETAMOL [Concomitant]
     Active Substance: ACETAMINOPHEN
     Indication: PAIN
     Route: 065
  3. BISOPROLOL [Concomitant]
     Active Substance: BISOPROLOL
     Dosage: 5 MG
     Route: 065
  4. OXYCODONE [Suspect]
     Active Substance: OXYCODONE
     Indication: PAIN
     Dosage: 1400 MG
     Route: 065
  5. DULOXETINE [Concomitant]
     Active Substance: DULOXETINE
     Dosage: 30 MG
     Route: 065
  6. TORASEMID [Concomitant]
     Active Substance: TORSEMIDE
     Dosage: 10 MG
     Route: 065
  7. INSULIN [Concomitant]
     Active Substance: INSULIN NOS
     Dosage: 30 U
     Route: 065
  8. PANTOPRAZOLE [Concomitant]
     Active Substance: PANTOPRAZOLE SODIUM
     Dosage: 40 MG
     Route: 065
  9. RISPERIDON [Concomitant]
     Active Substance: RISPERIDONE
     Dosage: 1.5 MG
     Route: 065

REACTIONS (14)
  - Seborrhoeic dermatitis [Unknown]
  - Hypertension [Unknown]
  - Chronic kidney disease [Unknown]
  - Pruritus [Unknown]
  - Withdrawal syndrome [Unknown]
  - Obesity [Unknown]
  - Type 2 diabetes mellitus [Unknown]
  - Exostosis [Unknown]
  - Sleep apnoea syndrome [Unknown]
  - Cholelithiasis [Unknown]
  - Neuropsychiatric syndrome [Unknown]
  - Metabolic disorder [Unknown]
  - Skin ulcer [Not Recovered/Not Resolved]
  - Constipation [Unknown]
